FAERS Safety Report 7555315-5 (Version None)
Quarter: 2011Q2

REPORT INFORMATION
  Report Type: 
  Country: None (occurrence: None)
  Receive Date: 20110617
  Receipt Date: 20110606
  Transmission Date: 20111010
  Serious: Yes (Other)
  Sender: FDA-Public Use
  Company Number: PHHY2011DE49952

PATIENT
  Sex: Female

DRUGS (3)
  1. ZOMETA [Suspect]
     Indication: BONE DISORDER
     Dosage: 4 MG EVERY 4 WEEKS
     Route: 042
     Dates: start: 20100517
  2. XELODA [Concomitant]
     Dosage: 3200 MG, UNK
     Dates: start: 20100623
  3. LAPATINIB [Concomitant]
     Dosage: 1250 MG, UNK
     Dates: start: 20100624

REACTIONS (6)
  - NEOPLASM PROGRESSION [None]
  - METASTASES TO LIVER [None]
  - METASTASES TO BONE [None]
  - NEOPLASM MALIGNANT [None]
  - PLEURAL EFFUSION [None]
  - GENERAL PHYSICAL HEALTH DETERIORATION [None]
